FAERS Safety Report 24443891 (Version 2)
Quarter: 2024Q4

REPORT INFORMATION
  Report Type: Spontaneous
  Country: US (occurrence: US)
  Receive Date: 20241016
  Receipt Date: 20241127
  Transmission Date: 20250114
  Serious: No
  Sender: ASTELLAS
  Company Number: US-ASTELLAS-2024-AER-012478

PATIENT
  Age: 81 Year
  Sex: Male

DRUGS (2)
  1. MYRBETRIQ [Suspect]
     Active Substance: MIRABEGRON
     Indication: Micturition urgency
     Route: 048
     Dates: start: 2023, end: 20240624
  2. MYRBETRIQ [Suspect]
     Active Substance: MIRABEGRON
     Indication: Micturition urgency
     Route: 048
     Dates: start: 20240605, end: 20241009

REACTIONS (5)
  - Nasal congestion [Recovering/Resolving]
  - Constipation [Recovering/Resolving]
  - Dizziness postural [Recovering/Resolving]
  - Insomnia [Unknown]
  - Drug ineffective [Unknown]
